FAERS Safety Report 8803076 (Version 1)
Quarter: 2012Q4

REPORT INFORMATION
  Report Type: 
  Country: RU (occurrence: RU)
  Receive Date: 20120924
  Receipt Date: 20120924
  Transmission Date: 20130627
  Serious: Yes (Hospitalization, Other)
  Sender: FDA-Public Use
  Company Number: RU-ASTRAZENECA-2012SE72458

PATIENT
  Sex: Male

DRUGS (12)
  1. BETALOC ZOK [Suspect]
     Indication: CORONARY ARTERY DISEASE
     Route: 048
     Dates: start: 20111010
  2. CARDIOMAGNYL [Suspect]
     Indication: CORONARY ARTERY DISEASE
     Route: 048
     Dates: start: 20110827, end: 20120725
  3. CARDIOMAGNYL [Suspect]
     Indication: CORONARY ARTERY DISEASE
     Route: 048
     Dates: start: 20120903
  4. BLOCTRAN (LOSARTAN) [Concomitant]
     Indication: CORONARY ARTERY DISEASE
     Route: 048
     Dates: start: 20120717
  5. BLOCTRAN (LOSARTAN) [Concomitant]
     Indication: VENTRICULAR TACHYCARDIA
     Route: 048
     Dates: start: 20120717
  6. CORDARONE (AMIODARONE) [Concomitant]
     Indication: CORONARY ARTERY DISEASE
     Route: 048
     Dates: start: 20110827
  7. CORDARONE (AMIODARONE) [Concomitant]
     Indication: VENTRICULAR TACHYCARDIA
     Route: 048
     Dates: start: 20110827
  8. ATORIS (ATORVASTATIN) [Concomitant]
     Indication: CORONARY ARTERY DISEASE
     Route: 048
     Dates: start: 20120827
  9. ATORIS (ATORVASTATIN) [Concomitant]
     Indication: VENTRICULAR TACHYCARDIA
     Route: 048
     Dates: start: 20120827
  10. NOLPAZA (PANTOPRAZOLE) [Concomitant]
     Indication: CORONARY ARTERY DISEASE
     Route: 048
     Dates: start: 20120727
  11. NOLPAZA (PANTOPRAZOLE) [Concomitant]
     Indication: DYSLIPIDAEMIA
     Route: 048
     Dates: start: 20120727
  12. ASPIRIN (ACETYLSALICYLIC ACID) [Concomitant]
     Route: 048
     Dates: end: 201207

REACTIONS (3)
  - Angina pectoris [Recovered/Resolved]
  - Gastritis erosive [Recovered/Resolved with Sequelae]
  - Gastritis atrophic [Unknown]
